FAERS Safety Report 25277630 (Version 1)
Quarter: 2025Q2

REPORT INFORMATION
  Report Type: Spontaneous
  Country: US (occurrence: None)
  Receive Date: 20250506
  Receipt Date: 20250506
  Transmission Date: 20250717
  Serious: Yes (Death)
  Sender: FDA-CTU
  Company Number: None

PATIENT
  Sex: Male

DRUGS (4)
  1. VIGABATRIN [Suspect]
     Active Substance: VIGABATRIN
     Indication: Bacterial disease carrier
     Dosage: FREQUENCY : TWICE A DAY;?OTHER ROUTE : VIA G-TUBE;?
     Route: 050
     Dates: start: 20171214
  2. FLUNTSTONES CHW MY Fl RST [Concomitant]
  3. PROTONIX TAB 20MG [Concomitant]
  4. VITAMIN D [Concomitant]
     Active Substance: VITAMIN D NOS

REACTIONS (1)
  - Death [None]
